FAERS Safety Report 9204373 (Version 1)
Quarter: 2013Q2

REPORT INFORMATION
  Report Type: Spontaneous
  Country: US (occurrence: US)
  Receive Date: 20130402
  Receipt Date: 20130402
  Transmission Date: 20140414
  Serious: Yes (Other)
  Sender: FDA-Public Use
  Company Number: US-PFIZER INC-2013102529

PATIENT
  Age: 63 Year
  Sex: Female
  Weight: 56.69 kg

DRUGS (8)
  1. NEURONTIN [Suspect]
     Indication: PAIN
     Dosage: UNK
  2. NAPROXEN [Concomitant]
     Indication: ARTHRITIS
     Dosage: 500 MG, 1X/DAY
  3. ATIVAN [Concomitant]
     Dosage: 1 MG, 3X/DAY
  4. ATENOLOL [Concomitant]
     Dosage: 25 MG, 1X/DAY
  5. LEXAPRO [Concomitant]
     Dosage: 5 MG, 1X/DAY
  6. REQUIP [Concomitant]
     Dosage: 0.5 MG, 1X/DAY
  7. SEROQUEL XR [Concomitant]
     Indication: SCHIZOAFFECTIVE DISORDER
     Dosage: 300 MG, 1X/DAY
  8. SEROQUEL XR [Concomitant]
     Indication: DEPRESSION

REACTIONS (10)
  - Brain hypoxia [Unknown]
  - Coma [Unknown]
  - Brain injury [Unknown]
  - Balance disorder [Unknown]
  - Dizziness [Unknown]
  - Fall [Unknown]
  - Neuropathy peripheral [Unknown]
  - Feeling abnormal [Unknown]
  - Off label use [Unknown]
  - Drug ineffective for unapproved indication [Unknown]
